FAERS Safety Report 9250348 (Version 1)
Quarter: 2013Q1

REPORT INFORMATION
  Report Type: Spontaneous
  Country: US (occurrence: None)
  Receive Date: 20130305
  Receipt Date: 20130305
  Transmission Date: 20140127
  Serious: Yes (Hospitalization, Other)
  Sender: FDA-Public Use
  Company Number: 163-21880-12062841

PATIENT
  Age: 68 Year
  Sex: Female

DRUGS (13)
  1. REVLIMID [Suspect]
     Indication: PLASMA CELL MYELOMA
     Route: 048
     Dates: start: 200607
  2. PREDNISONE (PREDNISONE) [Concomitant]
  3. BACTRIM DS (BACTRIM) [Concomitant]
  4. ACYCLOVIR (ACICLOVIR) [Concomitant]
  5. ARIMIDEX (ANASTROZOLE) [Concomitant]
  6. ASPIRIN (ACETYLSALICYLIC ACID) [Concomitant]
  7. SENOKOT (SENNA FRUIT) [Concomitant]
  8. ZINC (ZINC) [Concomitant]
  9. VITAMIN B6 (PYRIDOXINE HYDROCHLORIDE) [Concomitant]
  10. FOLIC ACID (FOLIC ACID) [Concomitant]
  11. LEVAQUIN (LEVOFLOXACIN) [Concomitant]
  12. ZITHROMAX Z-PAK (AZITHROMYCIN) [Concomitant]
  13. ZOMETA (ZOLEDRONIC ACID) [Concomitant]

REACTIONS (2)
  - Pneumonia [None]
  - White blood cell count decreased [None]
